FAERS Safety Report 18627234 (Version 10)
Quarter: 2022Q1

REPORT INFORMATION
  Report Type: Report from Study
  Country: AT (occurrence: AT)
  Receive Date: 20201217
  Receipt Date: 20220127
  Transmission Date: 20220423
  Serious: Yes (Death, Hospitalization, Other)
  Sender: FDA-Public Use
  Company Number: AT-TAKEDA-AT201831491

PATIENT
  Age: 51 Year
  Sex: Male
  Weight: 59 kg

DRUGS (16)
  1. VELAGLUCERASE ALFA [Suspect]
     Active Substance: VELAGLUCERASE ALFA
     Indication: Gaucher^s disease
     Dosage: 2400 INTERNATIONAL UNIT, Q2WEEKS
     Route: 042
     Dates: start: 2014
  2. VELAGLUCERASE ALFA [Suspect]
     Active Substance: VELAGLUCERASE ALFA
     Dosage: 2400 INTERNATIONAL UNIT, Q2WEEKS
     Route: 042
     Dates: start: 2014
  3. VELAGLUCERASE ALFA [Suspect]
     Active Substance: VELAGLUCERASE ALFA
     Dosage: UNK
     Route: 065
     Dates: start: 201908
  4. VELAGLUCERASE ALFA [Suspect]
     Active Substance: VELAGLUCERASE ALFA
     Dosage: UNK, Q2WEEKS
     Route: 042
     Dates: start: 20201124, end: 20201124
  5. VELAGLUCERASE ALFA [Suspect]
     Active Substance: VELAGLUCERASE ALFA
     Dosage: UNK, Q2WEEKS
     Route: 042
     Dates: start: 20201124
  6. VELAGLUCERASE ALFA [Suspect]
     Active Substance: VELAGLUCERASE ALFA
     Dosage: 3600 INTERNATIONAL UNIT, Q2WEEKS
     Route: 065
     Dates: start: 20210317, end: 20210317
  7. VELAGLUCERASE ALFA [Suspect]
     Active Substance: VELAGLUCERASE ALFA
     Dosage: 3600 INTERNATIONAL UNIT, Q2WEEKS
     Route: 065
     Dates: start: 20210317, end: 20210317
  8. VELAGLUCERASE ALFA [Suspect]
     Active Substance: VELAGLUCERASE ALFA
     Dosage: 3200 INTERNATIONAL UNIT
     Route: 042
  9. VELAGLUCERASE ALFA [Suspect]
     Active Substance: VELAGLUCERASE ALFA
     Dosage: 2800 INTERNATIONAL UNIT, Q2WEEKS
     Route: 042
  10. VELAGLUCERASE ALFA [Suspect]
     Active Substance: VELAGLUCERASE ALFA
     Dosage: 3200 INTERNATIONAL UNIT, Q2WEEKS
     Route: 042
  11. VELAGLUCERASE ALFA [Suspect]
     Active Substance: VELAGLUCERASE ALFA
     Dosage: 2800 INTERNATIONAL UNIT, Q2WEEKS
     Route: 042
  12. COVID-19 VACCINE NOS [Suspect]
     Active Substance: COVID-19 VACCINE NOS
     Indication: Product used for unknown indication
     Dosage: UNK
     Route: 065
  13. BENSERAZIDE HYDROCHLORIDE\LEVODOPA [Concomitant]
     Active Substance: BENSERAZIDE HYDROCHLORIDE\LEVODOPA
     Indication: Product used for unknown indication
     Dosage: UNK
     Route: 065
  14. Convulex [Concomitant]
  15. PRAMIPEXOLE [Concomitant]
     Active Substance: PRAMIPEXOLE
  16. RIVOTRIL [Concomitant]
     Active Substance: CLONAZEPAM

REACTIONS (14)
  - Death [Fatal]
  - Seizure [Unknown]
  - Epistaxis [Unknown]
  - Pneumonia [Recovered/Resolved]
  - Anal abscess [Recovering/Resolving]
  - Dysphagia [Not Recovered/Not Resolved]
  - General physical health deterioration [Recovered/Resolved]
  - Muscle spasms [Recovering/Resolving]
  - Haemoglobin decreased [Unknown]
  - Malaise [Recovering/Resolving]
  - SARS-CoV-2 test positive [Unknown]
  - Vaccination complication [Recovering/Resolving]
  - COVID-19 immunisation [Unknown]
  - Pyrexia [Recovering/Resolving]

NARRATIVE: CASE EVENT DATE: 20180812
